FAERS Safety Report 15280909 (Version 3)
Quarter: 2018Q4

REPORT INFORMATION
  Report Type: Spontaneous
  Country: US (occurrence: US)
  Receive Date: 20180815
  Receipt Date: 20181010
  Transmission Date: 20190204
  Serious: No
  Sender: FDA-Public Use
  Company Number: US-GLAXOSMITHKLINE-US2018145499

PATIENT
  Sex: Female
  Weight: 76.19 kg

DRUGS (1)
  1. VENTOLIN HFA [Suspect]
     Active Substance: ALBUTEROL SULFATE
     Indication: EMPHYSEMA
     Dosage: 2 PUFF(S), PRN
     Route: 055

REACTIONS (3)
  - Wrong technique in device usage process [Unknown]
  - Product dose omission [Unknown]
  - Product complaint [Unknown]
